FAERS Safety Report 21507517 (Version 7)
Quarter: 2024Q2

REPORT INFORMATION
  Report Type: Spontaneous
  Country: US (occurrence: US)
  Receive Date: 20221026
  Receipt Date: 20240412
  Transmission Date: 20240716
  Serious: No
  Sender: FDA-Public Use
  Company Number: US-PFIZER INC-PV202200089796

PATIENT
  Age: 65 Year
  Sex: Female
  Weight: 63.492 kg

DRUGS (1)
  1. XELJANZ XR [Suspect]
     Active Substance: TOFACITINIB CITRATE
     Dosage: 11 MG, 1X/DAY

REACTIONS (6)
  - Malaise [Unknown]
  - Osteoporosis [Unknown]
  - Fall [Unknown]
  - Immune system disorder [Unknown]
  - Nausea [Unknown]
  - Drug ineffective [Unknown]
